FAERS Safety Report 9424695 (Version 1)
Quarter: 2013Q3

REPORT INFORMATION
  Report Type: Report from Study
  Country: KR (occurrence: KR)
  Receive Date: 20130729
  Receipt Date: 20130729
  Transmission Date: 20140515
  Serious: Yes (Hospitalization)
  Sender: FDA-Public Use
  Company Number: KR-ELI_LILLY_AND_COMPANY-KR201307006709

PATIENT
  Age: 53 Year
  Sex: Male
  Weight: 66 kg

DRUGS (5)
  1. PRASUGREL HYDROCHLORIDE [Suspect]
     Indication: THROMBOSIS
     Dosage: 10 MG, QD
     Route: 048
     Dates: start: 20130318, end: 20130519
  2. ASTRIX [Concomitant]
     Indication: THROMBOSIS
     Dosage: UNK
     Dates: start: 20130316
  3. CONCOR [Concomitant]
     Indication: MYOCARDIAL INFARCTION
     Dosage: UNK
     Dates: start: 20130316
  4. CRESTOR [Concomitant]
     Indication: MYOCARDIAL INFARCTION
     Dosage: UNK
     Dates: start: 20130316
  5. VASTINAN [Concomitant]
     Indication: MYOCARDIAL INFARCTION
     Dosage: UNK
     Dates: start: 20130317

REACTIONS (2)
  - Gastric ulcer haemorrhage [Recovered/Resolved]
  - Blood glucose increased [Unknown]
